FAERS Safety Report 19874157 (Version 1)
Quarter: 2021Q3

REPORT INFORMATION
  Report Type: Spontaneous
  Country: US (occurrence: US)
  Receive Date: 20210923
  Receipt Date: 20210923
  Transmission Date: 20211014
  Serious: No
  Sender: FDA-Public Use
  Company Number: US-PERRIGO-20US013438

PATIENT
  Age: 30 Month
  Sex: Male

DRUGS (3)
  1. LORATADINE. [Suspect]
     Active Substance: LORATADINE
     Indication: HYPERSENSITIVITY
     Dosage: UNKNOWN, QD
     Route: 048
     Dates: end: 20200711
  2. LORATADINE. [Suspect]
     Active Substance: LORATADINE
     Dosage: UNKNOWN, QD
     Route: 048
     Dates: start: 20200712, end: 20200718
  3. LORATADINE. [Suspect]
     Active Substance: LORATADINE
     Dosage: UNKNOWN, QD
     Route: 048
     Dates: start: 20200720

REACTIONS (2)
  - Dermatitis diaper [Recovered/Resolved]
  - Diarrhoea [Recovered/Resolved]

NARRATIVE: CASE EVENT DATE: 20200712
